FAERS Safety Report 8437712-9 (Version None)
Quarter: 2012Q2

REPORT INFORMATION
  Report Type: 
  Country: None (occurrence: None)
  Receive Date: 20120614
  Receipt Date: 20120403
  Transmission Date: 20120825
  Serious: No
  Sender: FDA-Public Use
  Company Number: US-AMGEN-USASP2012018137

PATIENT
  Age: 77 Year
  Sex: Female
  Weight: 117 kg

DRUGS (7)
  1. CALCIUM [Concomitant]
     Dosage: UNK
  2. LASIX [Concomitant]
     Dosage: UNK
  3. PROLIA [Suspect]
     Indication: OSTEOPOROSIS POSTMENOPAUSAL
     Dosage: 60 MG, Q6MO
     Route: 058
     Dates: start: 20110919
  4. LIPITOR [Concomitant]
     Dosage: UNK
  5. IRON [Concomitant]
     Dosage: UNK
  6. BENICAR [Concomitant]
     Dosage: UNK
  7. PLAVIX [Concomitant]
     Dosage: UNK

REACTIONS (2)
  - JOINT STIFFNESS [None]
  - ARTHRALGIA [None]
